FAERS Safety Report 8335503-0 (Version None)
Quarter: 2012Q2

REPORT INFORMATION
  Report Type: 
  Country: None (occurrence: None)
  Receive Date: 20120503
  Receipt Date: 20120423
  Transmission Date: 20120825
  Serious: Yes (Other)
  Sender: FDA-Public Use
  Company Number: PL-BAXTER-2012BAX003689

PATIENT
  Sex: Male
  Weight: 78 kg

DRUGS (3)
  1. RITUXIMAB [Suspect]
     Route: 042
     Dates: start: 20100602
  2. CYCLOPHOSPHAMIDE [Suspect]
     Route: 042
     Dates: start: 20100603
  3. CLADRIBINE [Suspect]
     Route: 042
     Dates: start: 20100603

REACTIONS (1)
  - SQUAMOUS CELL CARCINOMA [None]
